FAERS Safety Report 16110155 (Version 1)
Quarter: 2019Q1

REPORT INFORMATION
  Report Type: Spontaneous
  Country: US (occurrence: US)
  Receive Date: 20190325
  Receipt Date: 20190325
  Transmission Date: 20190418
  Serious: No
  Sender: FDA-Public Use
  Company Number: US-BIO PRODUCTS LABORATORY LTD-2064477

PATIENT
  Sex: Male

DRUGS (2)
  1. INTERFERON ALFA-2B [Suspect]
     Active Substance: INTERFERON ALFA-2B
     Route: 058
  2. GENERIC IVLG [Suspect]
     Active Substance: HUMAN IMMUNOGLOBULIN G
     Indication: WEST NILE VIRAL INFECTION
     Route: 042

REACTIONS (2)
  - Drug effect incomplete [Recovered/Resolved with Sequelae]
  - Off label use [Unknown]
